FAERS Safety Report 4334307-3 (Version None)
Quarter: 2004Q2

REPORT INFORMATION
  Report Type: 
  Country: None (occurrence: None)
  Receive Date: 20040405
  Receipt Date: 20040319
  Transmission Date: 20050107
  Serious: Yes (Hospitalization)
  Sender: FDA-Public Use
  Company Number: S03-341-621

PATIENT
  Age: 56 Year
  Sex: Male
  Weight: 78 kg

DRUGS (1)
  1. VELCADE [Suspect]
     Indication: MULTIPLE MYELOMA
     Dosage: 2.6 MG BIW, INTRAVENOUS BOLUS
     Route: 040
     Dates: start: 20030929, end: 20031002

REACTIONS (25)
  - ASTHENIA [None]
  - BLOOD CALCIUM INCREASED [None]
  - BLOOD SODIUM DECREASED [None]
  - CANDIDIASIS [None]
  - CARDIAC FAILURE CONGESTIVE [None]
  - CHEST WALL PAIN [None]
  - CIRCULATORY COLLAPSE [None]
  - CREPITATIONS [None]
  - DIARRHOEA [None]
  - DYSKINESIA [None]
  - EPISTAXIS [None]
  - HAEMOGLOBIN DECREASED [None]
  - HYPOREFLEXIA [None]
  - LYMPHOCYTE COUNT DECREASED [None]
  - MYOCLONUS [None]
  - NAUSEA [None]
  - NEUTROPHIL COUNT INCREASED [None]
  - PAIN [None]
  - PAIN IN EXTREMITY [None]
  - PLATELET COUNT DECREASED [None]
  - PNEUMONIA PNEUMOCOCCAL [None]
  - RENAL IMPAIRMENT [None]
  - RIB FRACTURE [None]
  - SUPERINFECTION [None]
  - WHITE BLOOD CELL COUNT INCREASED [None]
